FAERS Safety Report 12073496 (Version 2)
Quarter: 2016Q1

REPORT INFORMATION
  Report Type: Spontaneous
  Country: LU (occurrence: LU)
  Receive Date: 20160212
  Receipt Date: 20160224
  Transmission Date: 20160526
  Serious: Yes (Hospitalization, Other)
  Sender: FDA-Public Use
  Company Number: LU-JNJFOC-20160211206

PATIENT
  Age: 84 Year
  Sex: Female
  Weight: 65 kg

DRUGS (8)
  1. XARELTO [Suspect]
     Active Substance: RIVAROXABAN
     Indication: EMBOLISM
     Route: 048
     Dates: start: 201401, end: 201512
  2. USTEKINUMAB [Suspect]
     Active Substance: USTEKINUMAB
     Indication: PSORIASIS
     Route: 058
     Dates: start: 201406, end: 20151216
  3. SPIRIVA [Concomitant]
     Active Substance: TIOTROPIUM BROMIDE MONOHYDRATE
     Indication: ASTHMA
     Route: 065
  4. LORAMET [Concomitant]
     Active Substance: LORMETAZEPAM
     Route: 065
  5. DAFALGAN [Concomitant]
     Active Substance: ACETAMINOPHEN
     Route: 065
  6. XARELTO [Suspect]
     Active Substance: RIVAROXABAN
     Indication: EMBOLISM VENOUS
     Route: 048
     Dates: start: 201401, end: 201512
  7. ONBREZ [Concomitant]
     Active Substance: INDACATEROL
     Route: 065
  8. USTEKINUMAB [Suspect]
     Active Substance: USTEKINUMAB
     Indication: POLYARTHRITIS
     Route: 058
     Dates: start: 201406, end: 20151216

REACTIONS (5)
  - Drug hypersensitivity [Unknown]
  - Pneumonia [Not Recovered/Not Resolved]
  - Rash [Unknown]
  - Toxic skin eruption [Unknown]
  - Pruritus [Unknown]

NARRATIVE: CASE EVENT DATE: 20160107
